FAERS Safety Report 19899293 (Version 8)
Quarter: 2024Q4

REPORT INFORMATION
  Report Type: Spontaneous
  Country: CZ (occurrence: CZ)
  Receive Date: 20210929
  Receipt Date: 20241121
  Transmission Date: 20250115
  Serious: Yes (Other)
  Sender: NOVARTIS
  Company Number: NVSC2021CZ212620

PATIENT
  Sex: Male
  Weight: 74 kg

DRUGS (13)
  1. GLYCOPYRRONIUM\INDACATEROL [Suspect]
     Active Substance: GLYCOPYRRONIUM\INDACATEROL
     Indication: Product used for unknown indication
     Dosage: UNK (85/43 UG (1 INHALATION))
     Route: 055
  2. GLYCOPYRRONIUM\INDACATEROL [Suspect]
     Active Substance: GLYCOPYRRONIUM\INDACATEROL
     Dosage: UNK (85/43 UG (1 INHALATION), RESPIRATORY)
     Route: 055
  3. GLYCOPYRRONIUM\INDACATEROL [Suspect]
     Active Substance: GLYCOPYRRONIUM\INDACATEROL
     Dosage: UNK (85/43 UG (1 INHALATION), RESPIRATORY)
     Route: 055
  4. ROSUVASTATIN CALCIUM [Suspect]
     Active Substance: ROSUVASTATIN CALCIUM
     Indication: Product used for unknown indication
     Dosage: 10 MG (FREQUENCY 1)
     Route: 048
  5. PAZOPANIB [Suspect]
     Active Substance: PAZOPANIB
     Indication: Product used for unknown indication
     Dosage: 800 MG, QD
     Route: 065
     Dates: start: 201611
  6. VOTRIENT [Suspect]
     Active Substance: PAZOPANIB HYDROCHLORIDE
     Indication: Product used for unknown indication
     Dosage: 800 MG, QD
     Route: 065
     Dates: start: 20161118
  7. AMINOPHYLLINE [Concomitant]
     Active Substance: AMINOPHYLLINE
     Indication: Product used for unknown indication
     Dosage: 600 MG, QD (300 MG, BID)
     Route: 048
  8. CLOPIDOGREL [Concomitant]
     Active Substance: CLOPIDOGREL BISULFATE
     Indication: Product used for unknown indication
     Dosage: 75 MG, QD
     Route: 048
  9. PLADIZOL [Concomitant]
     Indication: Product used for unknown indication
     Dosage: 200 MG, QD (100 MG, BID )
     Route: 048
  10. TELMISARTAN [Concomitant]
     Active Substance: TELMISARTAN
     Indication: Product used for unknown indication
     Dosage: 40 MG (ACCORDING TO BP)
     Route: 048
  11. AMILORIDE HYDROCHLORIDE\HYDROCHLOROTHIAZIDE [Concomitant]
     Active Substance: AMILORIDE HYDROCHLORIDE\HYDROCHLOROTHIAZIDE
     Indication: Product used for unknown indication
     Dosage: UNK (5/50MG 1/2)
     Route: 048
  12. AMLODIPINE BESYLATE [Concomitant]
     Active Substance: AMLODIPINE BESYLATE
     Indication: Product used for unknown indication
     Dosage: 5 MG, QD
     Route: 048
  13. BETAXOLOL HYDROCHLORIDE [Concomitant]
     Active Substance: BETAXOLOL HYDROCHLORIDE
     Indication: Product used for unknown indication
     Dosage: 20 MG, QD
     Route: 065

REACTIONS (11)
  - Adenocarcinoma [Unknown]
  - Hepatic enzyme increased [Recovered/Resolved]
  - Colitis [Unknown]
  - Metastases to lung [Unknown]
  - Pneumothorax [Recovering/Resolving]
  - Dyspnoea [Recovering/Resolving]
  - Regressive behaviour [Not Recovered/Not Resolved]
  - Malignant neoplasm progression [Unknown]
  - Hypothyroidism [Unknown]
  - Diarrhoea [Unknown]
  - C-reactive protein increased [Unknown]

NARRATIVE: CASE EVENT DATE: 20200701
